FAERS Safety Report 5599744-8 (Version None)
Quarter: 2008Q1

REPORT INFORMATION
  Report Type: 
  Country: None (occurrence: None)
  Receive Date: 20080123
  Receipt Date: 20080116
  Transmission Date: 20080703
  Serious: Yes (Life-Threatening)
  Sender: FDA-Public Use
  Company Number: NL-BRISTOL-MYERS SQUIBB COMPANY-14047120

PATIENT
  Age: 70 Year
  Sex: Female

DRUGS (1)
  1. SINEMET [Suspect]
     Dosage: 1 DOSAGE FORM = 50/12.5 MG TABLET
     Route: 048
     Dates: start: 20040101, end: 20070101

REACTIONS (2)
  - MOBILITY DECREASED [None]
  - MUTISM [None]
